FAERS Safety Report 18289254 (Version 1)
Quarter: 2020Q3

REPORT INFORMATION
  Report Type: Spontaneous
  Country: GB (occurrence: GB)
  Receive Date: 20200921
  Receipt Date: 20200921
  Transmission Date: 20201103
  Serious: Yes (Hospitalization, Other)
  Sender: FDA-Public Use
  Company Number: GB-TEVA-2020-GB-1828735

PATIENT
  Age: 79 Year
  Sex: Female

DRUGS (5)
  1. TRIMETHOPRIM. [Suspect]
     Active Substance: TRIMETHOPRIM
     Indication: URINARY TRACT INFECTION
     Dosage: 400MG
     Route: 048
     Dates: start: 20200722, end: 20200727
  2. COLECALCIFEROL [Concomitant]
     Active Substance: CHOLECALCIFEROL
  3. PREDNISOLONE. [Concomitant]
     Active Substance: PREDNISOLONE
  4. LANSOPRAZOLE. [Concomitant]
     Active Substance: LANSOPRAZOLE
  5. DOXAZOSIN [Concomitant]
     Active Substance: DOXAZOSIN MESYLATE

REACTIONS (8)
  - Vomiting projectile [Recovered/Resolved]
  - Syncope [Recovered/Resolved]
  - Pyrexia [Unknown]
  - Eye swelling [Recovered/Resolved]
  - Hypotension [Unknown]
  - Ocular hyperaemia [Unknown]
  - Depressed level of consciousness [Unknown]
  - Oxygen saturation decreased [Unknown]

NARRATIVE: CASE EVENT DATE: 20200722
